FAERS Safety Report 5103305-4 (Version None)
Quarter: 2006Q3

REPORT INFORMATION
  Report Type: 
  Country: None (occurrence: None)
  Receive Date: 20060908
  Receipt Date: 20060825
  Transmission Date: 20061208
  Serious: Yes (Disabling)
  Sender: FDA-Public Use
  Company Number: CEL-2005-00131-SLO

PATIENT
  Age: 68 Year
  Sex: Female
  Weight: 72 kg

DRUGS (1)
  1. PREDSOL EYE/EAR DROPS [Suspect]
     Indication: CONJUNCTIVITIS
     Dosage: EYE
     Dates: start: 20021216, end: 20021218

REACTIONS (11)
  - CATARACT [None]
  - CORNEAL OPACITY [None]
  - DRUG INTOLERANCE [None]
  - DRUG PRESCRIBING ERROR [None]
  - EYE SWELLING [None]
  - HERPES ZOSTER OPHTHALMIC [None]
  - KERATITIS HERPETIC [None]
  - KERATOPATHY [None]
  - PAIN [None]
  - POST HERPETIC NEURALGIA [None]
  - TRIGEMINAL NERVE DISORDER [None]
